FAERS Safety Report 13240579 (Version 1)
Quarter: 2017Q1

REPORT INFORMATION
  Report Type: Spontaneous
  Country: US (occurrence: US)
  Receive Date: 20170216
  Receipt Date: 20170216
  Transmission Date: 20170428
  Serious: No
  Sender: FDA-Public Use
  Company Number: US-RELYPSA-RLY2016004069

PATIENT
  Sex: Female

DRUGS (11)
  1. RANITIDINE. [Concomitant]
     Active Substance: RANITIDINE
  2. NADOLOL. [Concomitant]
     Active Substance: NADOLOL
  3. MIDODRINE [Concomitant]
     Active Substance: MIDODRINE
  4. SPIRONOLACTONE. [Concomitant]
     Active Substance: SPIRONOLACTONE
  5. CELEXA [Concomitant]
     Active Substance: CITALOPRAM HYDROBROMIDE
  6. VELTASSA [Suspect]
     Active Substance: PATIROMER
     Indication: HYPERKALAEMIA
     Dosage: 8.4 G, QD
     Route: 048
     Dates: start: 20161111, end: 20161212
  7. LETROZOLE. [Concomitant]
     Active Substance: LETROZOLE
  8. INSULIN [Concomitant]
     Active Substance: INSULIN NOS
  9. URSODIOL. [Concomitant]
     Active Substance: URSODIOL
  10. LASIX [Concomitant]
     Active Substance: FUROSEMIDE
  11. RENVELA [Concomitant]
     Active Substance: SEVELAMER CARBONATE

REACTIONS (4)
  - Faeces hard [Not Recovered/Not Resolved]
  - Nausea [Recovered/Resolved]
  - Constipation [Not Recovered/Not Resolved]
  - Decreased appetite [Recovered/Resolved]

NARRATIVE: CASE EVENT DATE: 2016
